FAERS Safety Report 4431395-0 (Version None)
Quarter: 2004Q3

REPORT INFORMATION
  Report Type: 
  Country: None (occurrence: None)
  Receive Date: 20040820
  Receipt Date: 20040820
  Transmission Date: 20050211
  Serious: Yes (Hospitalization)
  Sender: FDA-Public Use
  Company Number: None

PATIENT
  Age: 38 Year
  Sex: Male
  Weight: 95.2554 kg

DRUGS (2)
  1. AVELOX [Suspect]
     Indication: LYMPHADENOPATHY
     Dates: start: 20040731
  2. AVELOX [Suspect]
     Indication: PYREXIA
     Dates: start: 20040731

REACTIONS (5)
  - LYMPHADENOPATHY [None]
  - NAUSEA [None]
  - PYREXIA [None]
  - RASH [None]
  - VOMITING [None]
